FAERS Safety Report 8027078-0 (Version None)
Quarter: 2012Q1

REPORT INFORMATION
  Report Type: 
  Country: None (occurrence: None)
  Receive Date: 20120106
  Receipt Date: 20111229
  Transmission Date: 20120608
  Serious: Yes (Hospitalization, Other)
  Sender: FDA-Public Use
  Company Number: US-BAYER-201036121NA

PATIENT
  Age: 19 Year
  Sex: Female

DRUGS (3)
  1. ENPRESSE [Concomitant]
  2. DROSPIRENONE AND ETHINYL ESTRADIOL [Suspect]
     Indication: ORAL CONTRACEPTION
     Dosage: UNK
     Dates: start: 20060801, end: 20100601
  3. YASMIN [Suspect]
     Indication: ORAL CONTRACEPTION
     Route: 048
     Dates: start: 20060801, end: 20100601

REACTIONS (4)
  - CHOLECYSTITIS CHRONIC [None]
  - GALLBLADDER NON-FUNCTIONING [None]
  - ABDOMINAL PAIN UPPER [None]
  - GASTRITIS [None]
